FAERS Safety Report 15860592 (Version 1)
Quarter: 2019Q1

REPORT INFORMATION
  Report Type: Report from Study
  Country: None (occurrence: RO)
  Receive Date: 20190123
  Receipt Date: 20190123
  Transmission Date: 20190417
  Serious: Yes (Hospitalization)
  Sender: FDA-Public Use
  Company Number: RO-ABBVIE-19S-135-2630167-00

PATIENT
  Age: 69 Year
  Sex: Female

DRUGS (13)
  1. ALPHA D3 [Concomitant]
     Active Substance: ALFACALCIDOL
     Indication: PRODUCT USED FOR UNKNOWN INDICATION
     Dosage: UNKNOWN
     Route: 048
  2. INDAPAMID [Concomitant]
     Active Substance: INDAPAMIDE
     Indication: HYPERTENSION
     Dosage: UNKNOWN
     Route: 048
  3. BETALOC ZOK [Concomitant]
     Active Substance: METOPROLOL SUCCINATE
     Indication: GLAUCOMA
     Route: 048
  4. AZARGA [Concomitant]
     Active Substance: BRINZOLAMIDE\TIMOLOL MALEATE
     Indication: GLAUCOMA
     Dosage: UNKNOWN
     Route: 031
  5. TERTENSIF [Suspect]
     Active Substance: INDAPAMIDE
     Indication: HYPERTENSION
     Dosage: UNKNOWN
     Route: 048
  6. VIEKIRAX [Suspect]
     Active Substance: OMBITASVIR\PARITAPREVIR\RITONAVIR
     Indication: HEPATITIS C
     Route: 048
     Dates: start: 20181024, end: 20181210
  7. VIEKIRAX [Suspect]
     Active Substance: OMBITASVIR\PARITAPREVIR\RITONAVIR
     Indication: HEPATIC CIRRHOSIS
  8. ASPENTER [Suspect]
     Active Substance: ASPIRIN
     Indication: HYPERTENSION
     Dosage: UNKNOWN
     Route: 048
  9. EXVIERA [Suspect]
     Active Substance: DASABUVIR
     Indication: HEPATITIS C
     Route: 048
     Dates: start: 20181024, end: 20181210
  10. EXVIERA [Suspect]
     Active Substance: DASABUVIR
     Indication: HEPATIC CIRRHOSIS
  11. THYROZOL [Concomitant]
     Active Substance: METHIMAZOLE
     Indication: HYPERTHYROIDISM
  12. LUMIGAN [Concomitant]
     Active Substance: BIMATOPROST
     Indication: GLAUCOMA
     Dosage: UNKNOWN
     Route: 031
  13. THYROZOL [Concomitant]
     Active Substance: METHIMAZOLE
     Indication: THYROIDITIS CHRONIC
     Dosage: UNKNOWN
     Route: 048

REACTIONS (27)
  - White matter lesion [Recovering/Resolving]
  - Aortic arteriosclerosis [Recovering/Resolving]
  - Lacunar stroke [Recovering/Resolving]
  - Bradyphrenia [Recovering/Resolving]
  - Metabolic encephalopathy [Recovering/Resolving]
  - Cholestasis [Recovering/Resolving]
  - Hypokalaemia [Recovering/Resolving]
  - Cerebral disorder [Recovering/Resolving]
  - Hemiparesis [Recovering/Resolving]
  - Peripheral motor neuropathy [Recovering/Resolving]
  - Mitral valve incompetence [Recovering/Resolving]
  - Aortic valve incompetence [Recovering/Resolving]
  - Jaundice [Recovering/Resolving]
  - Slow speech [Recovering/Resolving]
  - Cerebral atrophy [Recovering/Resolving]
  - Oesophagitis [Recovering/Resolving]
  - Cerebrovascular disorder [Recovering/Resolving]
  - Asthenia [Recovering/Resolving]
  - Hyponatraemia [Recovering/Resolving]
  - Acquired oesophageal web [Recovering/Resolving]
  - Left atrial dilatation [Recovering/Resolving]
  - Tricuspid valve incompetence [Recovering/Resolving]
  - Hypoalbuminaemia [Recovering/Resolving]
  - Eye disorder [Recovering/Resolving]
  - Arteriosclerosis [Recovering/Resolving]
  - Mitral valve stenosis [Recovering/Resolving]
  - Anaemia [Recovering/Resolving]

NARRATIVE: CASE EVENT DATE: 20181201
